FAERS Safety Report 21343110 (Version 4)
Quarter: 2023Q1

REPORT INFORMATION
  Report Type: Spontaneous
  Country: US (occurrence: US)
  Receive Date: 20220916
  Receipt Date: 20230209
  Transmission Date: 20230417
  Serious: Yes (Other)
  Sender: FDA-Public Use
  Company Number: US-PFIZER INC-202201162780

PATIENT
  Age: 59 Year
  Sex: Male

DRUGS (1)
  1. HEPARIN SODIUM [Suspect]
     Active Substance: HEPARIN SODIUM
     Indication: Cardiovascular event prophylaxis
     Dosage: UNK (25,000 UNITS PER 250ML HALF NORMAL SALINE)
     Route: 041
     Dates: start: 20220425

REACTIONS (2)
  - Cytopenia [Unknown]
  - Thrombocytopenia [Unknown]

NARRATIVE: CASE EVENT DATE: 20220101
